FAERS Safety Report 23367266 (Version 1)
Quarter: 2024Q1

REPORT INFORMATION
  Report Type: Spontaneous
  Country: CH (occurrence: CH)
  Receive Date: 20240104
  Receipt Date: 20240104
  Transmission Date: 20240409
  Serious: Yes (Death, Hospitalization)
  Sender: FDA-Public Use
  Company Number: None

PATIENT
  Age: 57 Year
  Sex: Male

DRUGS (7)
  1. ZIRABEV [Suspect]
     Active Substance: BEVACIZUMAB-BVZR
     Indication: Adenocarcinoma of colon
     Dosage: 615 MG, CYCLIC (EVERY 3 WEEKS, DAY 1)
     Route: 042
     Dates: start: 20230102, end: 20230905
  2. CAPECITABINE [Suspect]
     Active Substance: CAPECITABINE
     Indication: Adenocarcinoma of colon
     Dosage: 3500 MG, CYCLIC (EVERY 3 WEEK, 2 WEEKS INTAKE, 1 WEEK BREAK)
     Route: 048
     Dates: start: 20230626, end: 20230919
  3. CLEMASTINE [Concomitant]
     Active Substance: CLEMASTINE
     Indication: Allergy prophylaxis
     Dosage: 2 MG, CYCLIC (EVERY 3 WEEKS)
     Route: 042
     Dates: start: 20230626, end: 20230905
  4. MOVICOL [Concomitant]
     Active Substance: POLYETHYLENE GLYCOL 3350\POTASSIUM CHLORIDE\SODIUM BICARBONATE\SODIUM CHLORIDE
     Indication: Constipation
     Dosage: 1 DF, AS NEEDED (1 SACHET IF REQUIRED)
     Route: 048
  5. LEUCOVORIN [Concomitant]
     Active Substance: LEUCOVORIN\LEUCOVORIN CALCIUM
     Indication: Adenocarcinoma of colon
     Dosage: UNK UNK, CYCLIC
     Route: 042
     Dates: start: 20230102, end: 20230605
  6. FLUOROURACIL [Concomitant]
     Active Substance: FLUOROURACIL
     Indication: Adenocarcinoma of colon
     Dosage: UNK UNK, CYCLIC
     Route: 042
     Dates: start: 20230102, end: 20230605
  7. OXALIPLATIN [Concomitant]
     Active Substance: OXALIPLATIN
     Indication: Adenocarcinoma of colon
     Dosage: UNK UNK, CYCLIC
     Route: 042
     Dates: start: 20230102, end: 20230605

REACTIONS (1)
  - Intestinal perforation [Fatal]

NARRATIVE: CASE EVENT DATE: 20230922
